FAERS Safety Report 9454775 (Version 1)
Quarter: 2013Q3

REPORT INFORMATION
  Report Type: Spontaneous
  Country: US (occurrence: US)
  Receive Date: 20130812
  Receipt Date: 20130812
  Transmission Date: 20140515
  Serious: Yes (Hospitalization)
  Sender: FDA-Public Use
  Company Number: US-B.I. PHARMACEUTICALS,INC./RIDGEFIELD-2013-BI-23735BP

PATIENT
  Sex: Female

DRUGS (8)
  1. COMBIVENT [Suspect]
     Indication: CHRONIC OBSTRUCTIVE PULMONARY DISEASE
     Dosage: STRENGTH: 18 MCG / 103 MCG; DAILY DOSE: 108 MCG/618 MCG
     Route: 055
     Dates: start: 2004, end: 201307
  2. COMBIVENT [Suspect]
     Indication: CHRONIC OBSTRUCTIVE PULMONARY DISEASE
     Dosage: STRENGTH: 20 MCG / 100 MCG; DAILY DOSE: 120 MCG/600 MCG
     Route: 055
     Dates: start: 201307
  3. LASIX [Concomitant]
     Indication: FLUID RETENTION
     Route: 048
     Dates: start: 2008
  4. METOPROLOL [Concomitant]
     Indication: CARDIAC DISORDER
     Route: 048
     Dates: start: 2008
  5. DIGOXIN [Concomitant]
     Indication: CARDIAC DISORDER
     Route: 048
     Dates: start: 2008
  6. WARFARIN [Concomitant]
     Indication: BLOOD VISCOSITY INCREASED
     Route: 048
     Dates: start: 2008
  7. KLOR CON [Concomitant]
     Route: 048
     Dates: start: 2008
  8. DILTIAZEM [Concomitant]
     Indication: CARDIAC DISORDER
     Route: 048

REACTIONS (5)
  - Myocardial infarction [Recovered/Resolved]
  - Fall [Recovered/Resolved]
  - Hypertonic bladder [Not Recovered/Not Resolved]
  - Dyspnoea [Not Recovered/Not Resolved]
  - Blood iron decreased [Not Recovered/Not Resolved]
